FAERS Safety Report 16747234 (Version 3)
Quarter: 2019Q3

REPORT INFORMATION
  Report Type: Spontaneous
  Country: US (occurrence: US)
  Receive Date: 20190827
  Receipt Date: 20190905
  Transmission Date: 20191005
  Serious: No
  Sender: FDA-Public Use
  Company Number: US-SA-2019SA237922

PATIENT
  Age: 62 Year
  Sex: Female

DRUGS (2)
  1. CABLIVI [Suspect]
     Active Substance: CAPLACIZUMAB-YHDP
     Indication: THROMBOTIC MICROANGIOPATHY
     Dosage: 11 MG, QD
     Route: 058
     Dates: start: 20190803
  2. RITUXAN [Concomitant]
     Active Substance: RITUXIMAB
     Dosage: UNK
     Route: 065
     Dates: start: 20190816

REACTIONS (4)
  - Injection site erythema [Unknown]
  - Injection site rash [Unknown]
  - Injection site pruritus [Unknown]
  - Fatigue [Unknown]
